FAERS Safety Report 6112409-9 (Version None)
Quarter: 2009Q1

REPORT INFORMATION
  Report Type: 
  Country: None (occurrence: None)
  Receive Date: 20090312
  Receipt Date: 20090303
  Transmission Date: 20090719
  Serious: Yes (Hospitalization)
  Sender: FDA-Public Use
  Company Number: US-KINGPHARMUSA00001-K200900217

PATIENT
  Age: 67 Year
  Sex: Female

DRUGS (14)
  1. ALTACE [Suspect]
     Dosage: 5 MG, QD
     Route: 048
     Dates: end: 20081117
  2. ESIDREX                            /00022001/ [Suspect]
     Dosage: 12.5 MG, QD
     Route: 048
     Dates: end: 20081117
  3. METHOTREXATE [Suspect]
     Dosage: 10 MG, QW
  4. METHOTREXATE [Suspect]
     Dosage: 20 MG, UNK
     Dates: start: 20081110, end: 20081110
  5. CORTANCYL [Concomitant]
     Dosage: UNK
  6. AMARYL [Concomitant]
     Dosage: 1 U, UNK
     Route: 048
     Dates: end: 20081101
  7. GLUCOPHAGE [Concomitant]
     Dosage: 3 G, UNK
     Route: 048
     Dates: end: 20081101
  8. INSULATARD                         /00030504/ [Concomitant]
     Dosage: UNK
  9. SECTRAL [Concomitant]
     Dosage: UNK
  10. INEGY [Concomitant]
     Dosage: UNK
  11. DEROXAT [Concomitant]
  12. AUGMENTIN '125' [Concomitant]
     Indication: ERYSIPELAS
     Dosage: 3 G, UNK
     Dates: start: 20081106, end: 20081117
  13. AMOXICILLINE                       /00249602/ [Concomitant]
     Indication: ERYSIPELAS
     Dosage: 3 G, UNK
     Route: 042
     Dates: start: 20081106, end: 20081110
  14. CLAMOXYL                           /00249601/ [Concomitant]
     Indication: ERYSIPELAS
     Dosage: 3 G, UNK
     Route: 048
     Dates: start: 20081111, end: 20081116

REACTIONS (5)
  - DIARRHOEA [None]
  - ERYSIPELAS [None]
  - MALAISE [None]
  - RENAL FAILURE ACUTE [None]
  - VOMITING [None]
